FAERS Safety Report 18196518 (Version 1)
Quarter: 2020Q3

REPORT INFORMATION
  Report Type: Spontaneous
  Country: FR (occurrence: FR)
  Receive Date: 20200826
  Receipt Date: 20200826
  Transmission Date: 20201103
  Serious: Yes (Other)
  Sender: FDA-Public Use
  Company Number: FR-ROCHE-2665373

PATIENT
  Age: 63 Year
  Sex: Male

DRUGS (1)
  1. XELODA [Suspect]
     Active Substance: CAPECITABINE
     Indication: LUNG ADENOCARCINOMA
     Route: 048
     Dates: start: 20200324, end: 20200408

REACTIONS (3)
  - Mucosal inflammation [Recovered/Resolved]
  - Paraesthesia [Recovered/Resolved]
  - Diarrhoea [Recovered/Resolved]

NARRATIVE: CASE EVENT DATE: 202004
